FAERS Safety Report 16226351 (Version 1)
Quarter: 2019Q2

REPORT INFORMATION
  Report Type: Spontaneous
  Country: RS (occurrence: RS)
  Receive Date: 20190423
  Receipt Date: 20190423
  Transmission Date: 20190711
  Serious: Yes (Other)
  Sender: FDA-Public Use
  Company Number: RS-TEVA-2019-RS-1040692

PATIENT
  Sex: Female

DRUGS (13)
  1. DOXORUBICIN [Suspect]
     Active Substance: DOXORUBICIN
     Indication: OVARIAN EPITHELIAL CANCER STAGE III
     Route: 065
  2. CARBOPLATIN. [Suspect]
     Active Substance: CARBOPLATIN
     Indication: OVARIAN EPITHELIAL CANCER STAGE III
     Route: 065
  3. TAXOL [Suspect]
     Active Substance: PACLITAXEL
     Indication: OVARIAN EPITHELIAL CANCER STAGE III
     Dosage: FOUR CYCLES
     Route: 065
  4. CARBOPLATIN. [Suspect]
     Active Substance: CARBOPLATIN
     Dosage: CBDCA; FOUR CYCLES
     Route: 065
  5. PACLITAXEL. [Suspect]
     Active Substance: PACLITAXEL
     Indication: OVARIAN EPITHELIAL CANCER STAGE III
     Route: 065
  6. TAXOL [Suspect]
     Active Substance: PACLITAXEL
     Route: 065
  7. BEVACIZUMAB. [Concomitant]
     Active Substance: BEVACIZUMAB
     Indication: OVARIAN EPITHELIAL CANCER STAGE III
     Dosage: NINE CYCLES
     Route: 065
  8. CISPLATIN. [Suspect]
     Active Substance: CISPLATIN
     Dosage: CDDP
     Route: 065
  9. CISPLATIN. [Suspect]
     Active Substance: CISPLATIN
     Dosage: FIVE CYCLES; CONTINUED FOR NEXT FIVE MONTHS
     Route: 065
  10. PACLITAXEL. [Suspect]
     Active Substance: PACLITAXEL
     Dosage: WEEKLY
     Route: 065
  11. CISPLATIN. [Suspect]
     Active Substance: CISPLATIN
     Indication: OVARIAN EPITHELIAL CANCER STAGE III
     Dosage: SALVAGE CHEMOTHERAPY, WEEKLY
     Route: 065
  12. GEMCITABINE [Suspect]
     Active Substance: GEMCITABINE\GEMCITABINE HYDROCHLORIDE
     Indication: OVARIAN EPITHELIAL CANCER STAGE III
     Dosage: NINE CYCLES
     Route: 065
  13. PACLITAXEL. [Suspect]
     Active Substance: PACLITAXEL
     Dosage: SALVAGE CHEMOTHERAPY, WEEKLY
     Route: 065

REACTIONS (3)
  - Hypersensitivity [Unknown]
  - Peripheral sensory neuropathy [Recovering/Resolving]
  - Haematotoxicity [Unknown]
